FAERS Safety Report 24613509 (Version 1)
Quarter: 2024Q4

REPORT INFORMATION
  Report Type: Spontaneous
  Country: JP (occurrence: JP)
  Receive Date: 20241113
  Receipt Date: 20241113
  Transmission Date: 20250115
  Serious: Yes (Death, Hospitalization, Other)
  Sender: DAIICHI
  Company Number: JP-DSJP-DS-2024-106170-JP

PATIENT
  Age: 91 Year
  Sex: Male

DRUGS (2)
  1. UFRENMERAN [Suspect]
     Active Substance: UFRENMERAN
     Indication: Immunisation
     Dosage: NUMBER OF COVID-19 VACCINATIONS UNKNOWN
     Route: 065
  2. EDOXABAN TOSYLATE [Suspect]
     Active Substance: EDOXABAN TOSYLATE
     Indication: Product used for unknown indication
     Dosage: UNK
     Route: 065

REACTIONS (3)
  - Immune thrombocytopenia [Fatal]
  - Pulmonary haemorrhage [Fatal]
  - Mouth haemorrhage [Unknown]
